FAERS Safety Report 12755363 (Version 4)
Quarter: 2017Q3

REPORT INFORMATION
  Report Type: Spontaneous
  Country: JP (occurrence: JP)
  Receive Date: 20160916
  Receipt Date: 20170804
  Transmission Date: 20171127
  Serious: Yes (Hospitalization, Disabling, Other)
  Sender: FDA-Public Use
  Company Number: PHHY2016JP126861

PATIENT
  Age: 84 Year
  Sex: Male
  Weight: 57 kg

DRUGS (4)
  1. PREDONINE [Suspect]
     Active Substance: PREDNISOLONE
     Indication: IMMUNE THROMBOCYTOPENIC PURPURA
     Route: 048
  2. ZOMETA [Suspect]
     Active Substance: ZOLEDRONIC ACID
     Indication: METASTASES TO BONE
     Dosage: 4 MG, UNK
     Route: 041
     Dates: end: 200606
  3. ZOMETA [Suspect]
     Active Substance: ZOLEDRONIC ACID
     Indication: PROSTATE CANCER
  4. ZOMETA [Suspect]
     Active Substance: ZOLEDRONIC ACID
     Indication: BREAST CANCER

REACTIONS (6)
  - Bone disorder [Not Recovered/Not Resolved]
  - Erythema [Unknown]
  - Abscess jaw [Unknown]
  - Osteonecrosis of jaw [Not Recovered/Not Resolved]
  - Pain in jaw [Unknown]
  - Swelling [Unknown]

NARRATIVE: CASE EVENT DATE: 20090525
